FAERS Safety Report 7091477-4 (Version None)
Quarter: 2010Q4

REPORT INFORMATION
  Report Type: 
  Country: None (occurrence: None)
  Receive Date: 20101105
  Receipt Date: 20101105
  Transmission Date: 20110411
  Serious: Yes (Hospitalization)
  Sender: FDA-Public Use
  Company Number: None

PATIENT
  Sex: Male
  Weight: 61.2356 kg

DRUGS (2)
  1. YAZ [Suspect]
     Indication: CONTRACEPTION
     Dosage: DAILY PO
     Route: 048
     Dates: start: 20080301, end: 20080317
  2. YAZ [Suspect]
     Indication: PREMENSTRUAL SYNDROME
     Dosage: DAILY PO
     Route: 048
     Dates: start: 20080301, end: 20080317

REACTIONS (2)
  - LIMB INJURY [None]
  - THROMBOSIS [None]
